FAERS Safety Report 9797213 (Version 1)
Quarter: 2014Q1

REPORT INFORMATION
  Report Type: Spontaneous
  Country: DE (occurrence: DE)
  Receive Date: 20140106
  Receipt Date: 20140106
  Transmission Date: 20141002
  Serious: Yes (Other)
  Sender: FDA-Public Use
  Company Number: DE-SUN PHARMACEUTICAL INDUSTRIES LTD-2013SUN05317

PATIENT
  Age: 62 Year
  Sex: Male

DRUGS (4)
  1. OXALIPLATIN SUN 5 MG/ML POW FOR SOL FOR INFUSION [Suspect]
     Indication: RECTAL CANCER METASTATIC
     Dosage: 85 MG/M2, UNK
     Route: 065
  2. FLUOROURACIL [Suspect]
     Indication: RECTAL CANCER METASTATIC
     Dosage: 2.00 MG/M2, UNK
     Route: 065
  3. FOLINIC ACID [Suspect]
     Indication: RECTAL CANCER METASTATIC
     Dosage: 500 MG/M2, UNK
  4. PHENPROCOUMON [Concomitant]
     Indication: ATRIAL FIBRILLATION

REACTIONS (3)
  - Pulmonary granuloma [Recovering/Resolving]
  - Respiratory failure [Recovering/Resolving]
  - Neoplasm progression [Not Recovered/Not Resolved]
